FAERS Safety Report 4596985-3 (Version None)
Quarter: 2005Q1

REPORT INFORMATION
  Report Type: 
  Country: None (occurrence: None)
  Receive Date: 20050302
  Receipt Date: 20050107
  Transmission Date: 20050727
  Serious: Yes (Other)
  Sender: FDA-Public Use
  Company Number: RU-ABBOTT-05P-251-0285873-00

PATIENT
  Sex: Male

DRUGS (2)
  1. DEPAKENE [Suspect]
     Indication: EPILEPSY
     Route: 048
     Dates: start: 20040901
  2. DEPAKENE [Suspect]
     Indication: CONVULSION

REACTIONS (5)
  - BILIARY DYSKINESIA [None]
  - CONVULSION [None]
  - DRUG INEFFECTIVE [None]
  - HALITOSIS [None]
  - PANCREATITIS ACUTE [None]
